FAERS Safety Report 8937212 (Version 2)
Quarter: 2012Q4

REPORT INFORMATION
  Report Type: Spontaneous
  Country: US (occurrence: None)
  Receive Date: 20121121
  Receipt Date: 20121123
  Transmission Date: 20130627
  Serious: Yes (Hospitalization)
  Sender: FDA-Public Use
  Company Number: UTC-025512

PATIENT
  Age: 74 Year
  Sex: Female
  Weight: 62.27 kg

DRUGS (2)
  1. TYVASO (6 MICROGRAM, AEROSOL FOR INHALATION) (TREPROSTINIL SODIUM) [Suspect]
     Indication: PRIMARY PULMONARY HYPERTENSION
     Dosage: 18-54 Micrograms (4 in 1 D), Inhalation
144 mcg (36 mcg, 4 in 1 D), Inhalation
     Route: 055
     Dates: start: 20120926, end: 201211
  2. ADCIRCA (TADALAFIL) [Concomitant]

REACTIONS (8)
  - Platelet count decreased [None]
  - Kidney infection [None]
  - Pneumonia [None]
  - Arthralgia [None]
  - Arthralgia [None]
  - Joint swelling [None]
  - Abasia [None]
  - Drug ineffective [None]
